FAERS Safety Report 24659423 (Version 1)
Quarter: 2024Q4

REPORT INFORMATION
  Report Type: Spontaneous
  Country: ES (occurrence: ES)
  Receive Date: 20241125
  Receipt Date: 20241125
  Transmission Date: 20250114
  Serious: Yes (Hospitalization)
  Sender: PFIZER
  Company Number: ES-ROCHE-3523027

PATIENT
  Age: 70 Year
  Sex: Male
  Weight: 65.1 kg

DRUGS (34)
  1. CARBOPLATIN [Suspect]
     Active Substance: CARBOPLATIN
     Indication: Non-small cell lung cancer metastatic
     Dosage: 375 MG, EVERY 3 WEEKS
     Route: 042
     Dates: start: 20230801
  2. CARBOPLATIN [Suspect]
     Active Substance: CARBOPLATIN
     Dosage: 397 MG, EVERY 3 WEEKS
     Route: 042
     Dates: start: 20230919
  3. PEMETREXED [Suspect]
     Active Substance: PEMETREXED
     Indication: Non-small cell lung cancer metastatic
     Dosage: 889.5 MG, EVERY 3 WEEKS
     Route: 042
     Dates: start: 20230801
  4. PEMETREXED [Suspect]
     Active Substance: PEMETREXED
     Dosage: 890 MG, EVERY 3 WEEKS
     Route: 042
  5. PEMETREXED [Suspect]
     Active Substance: PEMETREXED
     Dosage: 398 MG
     Dates: start: 20240220
  6. PLACEBO [Suspect]
     Active Substance: PLACEBO
     Indication: Non-small cell lung cancer metastatic
     Dosage: UNK, EVERY 3 WEEKS
     Route: 042
     Dates: start: 20230801
  7. PEMBROLIZUMAB [Suspect]
     Active Substance: PEMBROLIZUMAB
     Indication: Non-small cell lung cancer metastatic
     Dosage: ON 20FEB2024, HE RECEIVED MOST RECENT DOSE OF ATEZOLIZUMAB/PERBROLIZUMAB PRIOR TO SAE.
     Route: 042
     Dates: start: 20230801
  8. PEMBROLIZUMAB [Suspect]
     Active Substance: PEMBROLIZUMAB
     Dosage: UNK
     Route: 042
  9. PEMBROLIZUMAB [Suspect]
     Active Substance: PEMBROLIZUMAB
     Dosage: UNK
     Route: 042
  10. PEMBROLIZUMAB [Suspect]
     Active Substance: PEMBROLIZUMAB
     Dosage: UNK
     Route: 042
  11. ATEZOLIZUMAB [Suspect]
     Active Substance: ATEZOLIZUMAB
     Indication: Non-small cell lung cancer metastatic
     Dosage: ON 20FEB2024, HE RECEIVED MOST RECENT DOSE OF ATEZOLIZUMAB/PERBROLIZUMAB PRIOR TO SAE.
     Route: 042
     Dates: start: 20230801
  12. ATEZOLIZUMAB [Suspect]
     Active Substance: ATEZOLIZUMAB
     Dosage: UNK
     Route: 042
  13. ATEZOLIZUMAB [Suspect]
     Active Substance: ATEZOLIZUMAB
     Dosage: UNK
     Dates: start: 20240220
  14. FAMOTIDINE [Concomitant]
     Active Substance: FAMOTIDINE
     Dosage: 20 MG
     Route: 048
     Dates: start: 20230719
  15. PYRIDOXINE HYDROCHLORIDE [Concomitant]
     Active Substance: PYRIDOXINE HYDROCHLORIDE
     Dosage: 300 MG
     Route: 048
     Dates: start: 20230719
  16. ASPIRIN [Concomitant]
     Active Substance: ASPIRIN
     Dosage: DRUG DOSE FIRST ADMINISTERED IS 400 OTHER ;ONGOING: YES
     Route: 048
     Dates: start: 20200508
  17. ACETAMINOPHEN [Concomitant]
     Active Substance: ACETAMINOPHEN
     Dosage: 1000 MG
     Route: 048
     Dates: start: 20200508
  18. TRAZODONE [Concomitant]
     Active Substance: TRAZODONE HYDROCHLORIDE
     Dosage: 100 MG
     Dates: start: 20230606
  19. DEXAMETHASONE [Concomitant]
     Active Substance: DEXAMETHASONE
     Dosage: 8 MG, EVERY 3 WEEKS
     Route: 048
     Dates: start: 20230731, end: 20240220
  20. TIAMINA [Concomitant]
     Dosage: 300 MG
     Route: 048
     Dates: start: 20230719
  21. LEVOTHYROXINE SODIUM [Concomitant]
     Active Substance: LEVOTHYROXINE SODIUM
     Dosage: 125 MG, 1X/DAY
     Route: 048
     Dates: start: 20231218
  22. LEVOTHYROXINE SODIUM [Concomitant]
     Active Substance: LEVOTHYROXINE SODIUM
     Dosage: 150 MG, 1X/DAY
     Route: 048
     Dates: start: 20240927
  23. LEVOTHYROXINE SODIUM [Concomitant]
     Active Substance: LEVOTHYROXINE SODIUM
     Dosage: 137 MG, 1X/DAY
     Route: 048
     Dates: start: 20240109, end: 20240926
  24. ZOLICO [FOLIC ACID] [Concomitant]
     Dosage: YES
     Dates: start: 20230719
  25. PIPERACILLIN [Concomitant]
     Active Substance: PIPERACILLIN
     Indication: Neutrophil count decreased
     Dosage: 4 G, 1X/DAY
     Route: 048
     Dates: start: 20240229, end: 20240307
  26. TAZOBACTAM [Concomitant]
     Active Substance: TAZOBACTAM
     Indication: Neutrophil count decreased
     Dosage: 0.5 MG, 1X/DAY
     Route: 048
     Dates: start: 20240229, end: 20240307
  27. AMOXICILLIN [Concomitant]
     Active Substance: AMOXICILLIN
     Indication: Neutrophil count decreased
     Dosage: 500 MG, 1X/DAY
     Route: 048
     Dates: start: 20240229, end: 20240307
  28. CIPROFLOXACIN [Concomitant]
     Active Substance: CIPROFLOXACIN
     Indication: Neutrophil count decreased
     Dosage: 500 MG, 1X/DAY
     Route: 048
     Dates: start: 20240229, end: 20240307
  29. METHYLPREDNISOLONE [Concomitant]
     Active Substance: METHYLPREDNISOLONE
     Indication: Arthritis
     Dosage: 80 MG, 1X/DAY
     Route: 048
     Dates: start: 20240612
  30. METHYLPREDNISOLONE [Concomitant]
     Active Substance: METHYLPREDNISOLONE
     Dosage: 60 MG, 1X/DAY
     Route: 048
     Dates: start: 20240614, end: 20240615
  31. METHYLPREDNISOLONE [Concomitant]
     Active Substance: METHYLPREDNISOLONE
     Dosage: 20 MG, 1X/DAY
     Route: 048
     Dates: start: 20240618, end: 20240619
  32. METHYLPREDNISOLONE [Concomitant]
     Active Substance: METHYLPREDNISOLONE
     Dosage: 40 MG, 1X/DAY
     Route: 048
     Dates: start: 20240616, end: 20240617
  33. PREDNISONE [Concomitant]
     Active Substance: PREDNISONE
     Indication: Prophylaxis
     Dosage: 10 MG, AS NEEDED
     Route: 048
     Dates: start: 20240619
  34. ZOLEDRONIC ACID [Concomitant]
     Active Substance: ZOLEDRONIC ACID
     Dosage: 4 MG, EVERY 3 WEEKS
     Route: 042
     Dates: start: 20240927

REACTIONS (2)
  - Nephritis [Not Recovered/Not Resolved]
  - Colitis [Recovered/Resolved]

NARRATIVE: CASE EVENT DATE: 20240301
